FAERS Safety Report 6015254-8 (Version None)
Quarter: 2008Q4

REPORT INFORMATION
  Report Type: 
  Country: None (occurrence: None)
  Receive Date: 20081222
  Receipt Date: 20081215
  Transmission Date: 20090506
  Serious: Yes (Death)
  Sender: FDA-Public Use
  Company Number: US-PFIZER INC-2008153703

PATIENT
  Age: 54 Year
  Sex: Male

DRUGS (10)
  1. GABAPENTIN [Suspect]
  2. ALPRAZOLAM [Suspect]
  3. METFORMIN HCL [Suspect]
  4. POTASSIUM CANRENOATE AND POTASSIUM CHLORIDE AND POTASSIUM CITRATE [Suspect]
  5. TRAZODONE HCL [Suspect]
  6. EFFEXOR XR [Suspect]
  7. FLUOXETINE [Suspect]
  8. FUROSEMIDE [Suspect]
  9. GLIMEPIRIDE [Suspect]
  10. ALL OTHER NON-THERAPEUTIC PRODUCTS [Suspect]

REACTIONS (1)
  - COMPLETED SUICIDE [None]
